FAERS Safety Report 7915441-5 (Version None)
Quarter: 2011Q4

REPORT INFORMATION
  Report Type: 
  Country: None (occurrence: None)
  Receive Date: 20111115
  Receipt Date: 20111109
  Transmission Date: 20120403
  Serious: Yes (Death, Other)
  Sender: FDA-Public Use
  Company Number: PHHY2011US099155

PATIENT
  Age: 74 Year
  Sex: Female
  Weight: 164 kg

DRUGS (2)
  1. WARFARIN SODIUM [Concomitant]
     Indication: INTERNATIONAL NORMALISED RATIO INCREASED
     Dosage: UNK UKN, UNK
  2. ENOXAPARIN SODIUM [Suspect]
     Indication: ATRIAL FIBRILLATION
     Dosage: 0.9MG/KG EVERY 12H

REACTIONS (2)
  - DEATH [None]
  - HAEMORRHAGE [None]
